FAERS Safety Report 5758760-3 (Version None)
Quarter: 2008Q2

REPORT INFORMATION
  Report Type: 
  Country: None (occurrence: None)
  Receive Date: 20080604
  Receipt Date: 20080527
  Transmission Date: 20081010
  Serious: Yes (Other)
  Sender: FDA-Public Use
  Company Number: US-WYE-H04248008

PATIENT
  Sex: Male
  Weight: 94.43 kg

DRUGS (8)
  1. TORISEL [Suspect]
     Indication: RENAL CANCER
     Route: 042
     Dates: start: 20070418
  2. CATAPRES [Concomitant]
     Indication: HYPERTENSION
  3. ALDACTONE [Concomitant]
     Indication: OEDEMA
     Route: 065
     Dates: start: 20080521
  4. PRILOSEC [Concomitant]
     Route: 065
  5. SIMVASTATIN [Concomitant]
     Indication: BLOOD CHOLESTEROL INCREASED
     Route: 065
     Dates: start: 20070929
  6. FUROSEMIDE [Concomitant]
     Indication: OEDEMA
     Dosage: 20 - 30 MG DAILY
     Route: 065
  7. ATENOLOL [Concomitant]
     Indication: HYPERTENSION
     Dosage: 50 MG - FREQUENCY NOT SPECIFIED
     Route: 065
  8. CITALOPRAM HYDROBROMIDE [Concomitant]
     Indication: DEPRESSION
     Route: 065

REACTIONS (7)
  - BLOOD CHOLESTEROL INCREASED [None]
  - BLOOD TRIGLYCERIDES INCREASED [None]
  - DIARRHOEA [None]
  - LETHARGY [None]
  - NAUSEA [None]
  - PYREXIA [None]
  - VOMITING [None]
